FAERS Safety Report 5742510-0 (Version None)
Quarter: 2008Q2

REPORT INFORMATION
  Report Type: 
  Country: None (occurrence: None)
  Receive Date: 20080515
  Receipt Date: 20080502
  Transmission Date: 20081010
  Serious: Yes (Disabling)
  Sender: FDA-Public Use
  Company Number: WAES 0802GBR00093

PATIENT
  Age: 56 Year
  Sex: Male

DRUGS (7)
  1. ZOCOR [Suspect]
     Indication: CORONARY ARTERY DISEASE
     Dosage: 20 MG BID PO
     Route: 048
     Dates: start: 20010307, end: 20080221
  2. PLACEBO (UNSPECIFIED) [Suspect]
     Indication: CORONARY ARTERY DISEASE
     Dosage: PO
     Route: 048
     Dates: start: 20010507, end: 20080221
  3. PLACEBO (UNSPECIFIED) [Suspect]
     Indication: CORONARY ARTERY DISEASE
     Dosage: PO
     Route: 048
     Dates: start: 20010507, end: 20080221
  4. ASPIRIN [Concomitant]
  5. LISINOPRIL [Concomitant]
  6. NITROGLYCERIN [Concomitant]
  7. OMEGA-3 MARINE TRIGLYCERIDES [Concomitant]

REACTIONS (1)
  - AMNESIA [None]
